FAERS Safety Report 8711274 (Version 2)
Quarter: 2012Q4

REPORT INFORMATION
  Report Type: 
  Country: US (occurrence: US)
  Receive Date: 20120807
  Receipt Date: 20120904
  Transmission Date: 20130627
  Serious: Yes (Death)
  Sender: FDA-Public Use
  Company Number: US-ROCHE-1098139

PATIENT
  Age: 82 Year
  Sex: Female
  Weight: 32.01 kg

DRUGS (1)
  1. AVASTIN [Suspect]
     Indication: ENDOMETRIAL CANCER
     Route: 042
     Dates: start: 20111118, end: 20120123

REACTIONS (1)
  - Disease progression [Fatal]
